FAERS Safety Report 4348284-2 (Version None)
Quarter: 2004Q1

REPORT INFORMATION
  Report Type: 
  Country: None (occurrence: None)
  Receive Date: 20040325
  Receipt Date: 20031030
  Transmission Date: 20041129
  Serious: No
  Sender: FDA-Public Use
  Company Number: USA031051275

PATIENT
  Age: 88 Year
  Sex: Male

DRUGS (1)
  1. FORTEO [Suspect]
     Dates: start: 20031001

REACTIONS (2)
  - DIFFICULTY IN WALKING [None]
  - INJECTION SITE MASS [None]
